FAERS Safety Report 9409952 (Version 4)
Quarter: 2013Q3

REPORT INFORMATION
  Report Type: Spontaneous
  Country: US (occurrence: US)
  Receive Date: 20130719
  Receipt Date: 20130918
  Transmission Date: 20140515
  Serious: Yes (Other)
  Sender: FDA-Public Use
  Company Number: US-JNJFOC-20130708255

PATIENT
  Age: 71 Year
  Sex: Female
  Weight: 60.33 kg

DRUGS (37)
  1. REMICADE [Suspect]
     Indication: RHEUMATOID ARTHRITIS
     Route: 042
     Dates: start: 20100311
  2. REMICADE [Suspect]
     Indication: RHEUMATOID ARTHRITIS
     Route: 042
     Dates: start: 20101103, end: 20120706
  3. ATROVENT [Concomitant]
     Route: 065
  4. DEXILANT [Concomitant]
     Route: 065
  5. IMFERON-B12 [Concomitant]
     Route: 065
  6. DIGOXIN [Concomitant]
     Route: 065
  7. FAMOTIDINE [Concomitant]
     Route: 065
  8. FISH OIL [Concomitant]
     Route: 065
  9. FLONASE [Concomitant]
     Route: 065
  10. FLUCONAZOLE [Concomitant]
     Route: 065
  11. FOLIC ACID [Concomitant]
     Route: 065
  12. HYOSCYAMINE [Concomitant]
     Route: 065
  13. METHOTREXATE [Concomitant]
     Indication: RHEUMATOID ARTHRITIS
     Route: 058
  14. MIRALAX [Concomitant]
     Route: 065
  15. NAPROXEN [Concomitant]
     Route: 065
  16. PEPCID [Concomitant]
     Route: 065
  17. PREMARIN [Concomitant]
     Route: 065
  18. RECLAST [Concomitant]
     Route: 065
  19. SIMVASTATIN [Concomitant]
     Route: 065
  20. TRETINOIN [Concomitant]
     Route: 065
  21. VENTOLIN [Concomitant]
     Route: 065
  22. VERAPAMIL [Concomitant]
     Route: 065
  23. SILVER SULFADIAZINE [Concomitant]
     Route: 065
  24. ADVAIR [Concomitant]
     Route: 065
  25. ASTELIN [Concomitant]
     Route: 065
  26. BIOTIN [Concomitant]
     Route: 065
  27. CALTRATE [Concomitant]
     Route: 065
  28. IPRATROPIUM [Concomitant]
     Route: 065
  29. LOSARTAN [Concomitant]
     Route: 065
  30. SPIRONOLACTONE [Concomitant]
     Route: 065
  31. VERAMYST [Concomitant]
     Route: 065
  32. VESICARE [Concomitant]
     Route: 065
  33. PREDNISONE [Concomitant]
     Indication: BRONCHITIS
     Dosage: 5-15 MG/DAY FOR FLARE-UP AND HIGH DOSES FOR ASTHAMA AND BRONCHITIS.
     Route: 065
  34. PREDNISONE [Concomitant]
     Indication: ASTHMA
     Dosage: 5-15 MG/DAY FOR FLARE-UP AND HIGH DOSES FOR ASTHAMA AND BRONCHITIS.
     Route: 065
  35. PREDNISONE [Concomitant]
     Indication: RHEUMATOID ARTHRITIS
     Dosage: 5-15 MG/DAY FOR FLARE-UP AND HIGH DOSES FOR ASTHAMA AND BRONCHITIS.
     Route: 065
  36. CORTICOSTEROIDS [Concomitant]
     Indication: ASTHMA
     Route: 065
  37. CORTICOSTEROIDS [Concomitant]
     Indication: RHEUMATOID ARTHRITIS
     Route: 065

REACTIONS (2)
  - Mycobacterium avium complex infection [Recovered/Resolved]
  - Granuloma [Recovered/Resolved]
